FAERS Safety Report 12334279 (Version 3)
Quarter: 2019Q2

REPORT INFORMATION
  Report Type: Spontaneous
  Country: US (occurrence: US)
  Receive Date: 20160504
  Receipt Date: 20190430
  Transmission Date: 20190711
  Serious: No
  Sender: FDA-Public Use
  Company Number: US-ABBVIE-15P-163-1490034-00

PATIENT
  Sex: Female

DRUGS (1)
  1. CREON [Suspect]
     Active Substance: PANCRELIPASE AMYLASE\PANCRELIPASE LIPASE\PANCRELIPASE PROTEASE
     Indication: PANCREATIC FAILURE
     Dosage: THREE PILL CASES, ONE FOR EACH MEAL.
     Route: 048

REACTIONS (5)
  - Mental impairment [Unknown]
  - Stress [Unknown]
  - Mental disorder [Unknown]
  - Abnormal behaviour [Unknown]
  - General physical health deterioration [Unknown]
